FAERS Safety Report 8188287-3 (Version None)
Quarter: 2012Q1

REPORT INFORMATION
  Report Type: 
  Country: None (occurrence: None)
  Receive Date: 20120306
  Receipt Date: 20120223
  Transmission Date: 20120608
  Serious: Yes (Other)
  Sender: FDA-Public Use
  Company Number: JP-ELI_LILLY_AND_COMPANY-JP201111007364

PATIENT
  Age: 84 Year
  Sex: Female

DRUGS (1)
  1. FORTEO [Suspect]
     Indication: OSTEOPOROSIS
     Dosage: UNK, QD
     Route: 058
     Dates: start: 20111118

REACTIONS (6)
  - PRURITUS [None]
  - DIARRHOEA [None]
  - ARRHYTHMIA [None]
  - FLATULENCE [None]
  - POSTURE ABNORMAL [None]
  - FEELING ABNORMAL [None]
